FAERS Safety Report 16876368 (Version 1)
Quarter: 2019Q4

REPORT INFORMATION
  Report Type: Spontaneous
  Country: US (occurrence: US)
  Receive Date: 20191002
  Receipt Date: 20191002
  Transmission Date: 20200122
  Serious: Yes (Disabling)
  Sender: FDA-Public Use
  Company Number: None

PATIENT
  Age: 54 Year
  Sex: Female
  Weight: 81 kg

DRUGS (12)
  1. MAGNESIUM [Concomitant]
     Active Substance: MAGNESIUM
  2. PROBIOTIC [Concomitant]
     Active Substance: PROBIOTICS NOS
  3. SIMVASTATIN. [Concomitant]
     Active Substance: SIMVASTATIN
  4. POTASSIUM [Concomitant]
     Active Substance: POTASSIUM
  5. LASIK [Concomitant]
     Active Substance: FUROSEMIDE\POTASSIUM CHLORIDE
  6. LEVAQUIN [Suspect]
     Active Substance: LEVOFLOXACIN
     Indication: URINARY TRACT INFECTION
     Route: 048
  7. VITAMIN D [Concomitant]
     Active Substance: VITAMIN D NOS
  8. METOPROLOL. [Concomitant]
     Active Substance: METOPROLOL
  9. ARMOUR THYROID [Concomitant]
     Active Substance: THYROID, PORCINE
  10. VITAMIN B12 [Concomitant]
     Active Substance: CYANOCOBALAMIN
  11. INHALER [Concomitant]
     Active Substance: UNSPECIFIED INGREDIENT
  12. TRAMADOL. [Concomitant]
     Active Substance: TRAMADOL

REACTIONS (9)
  - Polyneuropathy [None]
  - Adrenal disorder [None]
  - Hypertension [None]
  - Blood cholesterol increased [None]
  - Autoimmune thyroiditis [None]
  - Tendon disorder [None]
  - Central pain syndrome [None]
  - Small fibre neuropathy [None]
  - Feeling abnormal [None]

NARRATIVE: CASE EVENT DATE: 20000101
